FAERS Safety Report 7236956-1 (Version None)
Quarter: 2011Q1

REPORT INFORMATION
  Report Type: 
  Country: None (occurrence: None)
  Receive Date: 20110121
  Receipt Date: 20110111
  Transmission Date: 20110831
  Serious: Yes (Hospitalization)
  Sender: FDA-Public Use
  Company Number: US-BIOGENIDEC-2011BI001409

PATIENT
  Age: 32 Year
  Sex: Female

DRUGS (1)
  1. TYSABRI [Suspect]
     Indication: MULTIPLE SCLEROSIS
     Route: 042
     Dates: start: 20100901, end: 20100901

REACTIONS (7)
  - PLEURAL EFFUSION [None]
  - SYSTEMIC LUPUS ERYTHEMATOSUS [None]
  - RENAL TUBULAR NECROSIS [None]
  - LUPUS NEPHRITIS [None]
  - RENAL HYPERTENSION [None]
  - MULTIPLE SCLEROSIS RELAPSE [None]
  - SMALL INTESTINAL OBSTRUCTION [None]
